FAERS Safety Report 8111036-1 (Version None)
Quarter: 2012Q1

REPORT INFORMATION
  Report Type: 
  Country: None (occurrence: None)
  Receive Date: 20120203
  Receipt Date: 20110307
  Transmission Date: 20120608
  Serious: No
  Sender: FDA-Public Use
  Company Number: US-GLAXOSMITHKLINE-A0916967A

PATIENT
  Age: 44 Year
  Sex: Female

DRUGS (7)
  1. LAMICTAL [Suspect]
     Indication: CONVULSION
     Dosage: 500MG VARIABLE DOSE
     Route: 048
  2. SIMVASTATIN [Concomitant]
  3. MUCINEX [Concomitant]
  4. QUINAPRIL [Concomitant]
  5. ZYRTEC [Concomitant]
  6. SYNTHROID [Concomitant]
  7. PHENOBARBITAL TAB [Concomitant]

REACTIONS (3)
  - PRODUCT QUALITY ISSUE [None]
  - PRURITUS [None]
  - RASH GENERALISED [None]
